FAERS Safety Report 13366915 (Version 3)
Quarter: 2017Q1

REPORT INFORMATION
  Report Type: Spontaneous
  Country: TN (occurrence: TN)
  Receive Date: 20170323
  Receipt Date: 20170324
  Transmission Date: 20170429
  Serious: Yes (Hospitalization)
  Sender: FDA-Public Use
  Company Number: TN-IPCA LABORATORIES LIMITED-IPC201703-000279

PATIENT
  Age: 42 Year
  Sex: Female

DRUGS (3)
  1. CEFOTAXIME [Concomitant]
     Active Substance: CEFOTAXIME SODIUM
     Indication: RASH MORBILLIFORM
  2. CEFOTAXIME [Concomitant]
     Active Substance: CEFOTAXIME SODIUM
     Indication: URINARY TRACT INFECTION
  3. ALLOPURINOL. [Suspect]
     Active Substance: ALLOPURINOL

REACTIONS (1)
  - Drug reaction with eosinophilia and systemic symptoms [Recovered/Resolved]
